FAERS Safety Report 5292572-2 (Version None)
Quarter: 2007Q2

REPORT INFORMATION
  Report Type: 
  Country: None (occurrence: None)
  Receive Date: 20070410
  Receipt Date: 20070327
  Transmission Date: 20071010
  Serious: Yes (Hospitalization, Other)
  Sender: FDA-Public Use
  Company Number: GB-GENENTECH-239569

PATIENT
  Sex: Male

DRUGS (5)
  1. AVASTIN [Suspect]
     Indication: ADENOCARCINOMA
     Route: 065
     Dates: start: 20040915, end: 20050515
  2. TARCEVA [Suspect]
     Indication: ADENOCARCINOMA
     Dosage: 150 MG, UNK
     Route: 048
     Dates: start: 20050515
  3. GEMCITABINE [Concomitant]
     Indication: DRUG USE FOR UNKNOWN INDICATION
     Dates: start: 20060415, end: 20060615
  4. CARBOPLATIN [Concomitant]
     Indication: DRUG USE FOR UNKNOWN INDICATION
     Dates: start: 20060415, end: 20060615
  5. CETUXIMAB [Concomitant]
     Indication: DRUG USE FOR UNKNOWN INDICATION
     Dates: start: 20060915, end: 20061015

REACTIONS (2)
  - CEREBRAL ISCHAEMIA [None]
  - VASCULAR ENCEPHALOPATHY [None]
